FAERS Safety Report 15403046 (Version 1)
Quarter: 2018Q3

REPORT INFORMATION
  Report Type: Spontaneous
  Country: US (occurrence: US)
  Receive Date: 20180919
  Receipt Date: 20180919
  Transmission Date: 20181010
  Serious: Yes (Other)
  Sender: FDA-Public Use
  Company Number: US-PFIZER INC-2018375050

PATIENT
  Age: 37 Year
  Sex: Female

DRUGS (1)
  1. XELJANZ [Suspect]
     Active Substance: TOFACITINIB CITRATE
     Indication: CROHN^S DISEASE
     Dosage: 5 MG, TWICE A DAY
     Route: 048

REACTIONS (6)
  - Gait inability [Recovering/Resolving]
  - Dyspnoea [Recovering/Resolving]
  - Ventilation perfusion mismatch [Recovering/Resolving]
  - Pneumonitis [Recovering/Resolving]
  - Lung perforation [Recovering/Resolving]
  - Product use in unapproved indication [Recovering/Resolving]
